FAERS Safety Report 6546770-8 (Version None)
Quarter: 2010Q1

REPORT INFORMATION
  Report Type: 
  Country: None (occurrence: None)
  Receive Date: 20100119
  Receipt Date: 20100104
  Transmission Date: 20100710
  Serious: No
  Sender: FDA-Public Use
  Company Number: 2009AC000458

PATIENT
  Age: 64 Year
  Sex: Female

DRUGS (24)
  1. DIGOXIN [Suspect]
     Dosage: 250 MCG;PO
     Route: 048
     Dates: start: 20060101
  2. COZAAR [Concomitant]
  3. THEO-DUR [Concomitant]
  4. HYDROCODONE [Concomitant]
  5. ALBUTEROL [Concomitant]
  6. SPIRIVA [Concomitant]
  7. ACIPHEX [Concomitant]
  8. SINGULAIR [Concomitant]
  9. FUROSEMIDE [Concomitant]
  10. SIMVASTATIN [Concomitant]
  11. SPIRONOLACTONE [Concomitant]
  12. GABAPENTIN [Concomitant]
  13. POTASSIUM [Concomitant]
  14. METOLAZONE [Concomitant]
  15. NOVOLOG [Concomitant]
  16. COREG [Concomitant]
  17. GLIMEPIRIDE [Concomitant]
  18. MUNCINEX [Concomitant]
  19. ASPIRIN [Concomitant]
  20. OMEPRAZOLE [Concomitant]
  21. CARVEDILOL [Concomitant]
  22. SYMBICORT [Concomitant]
  23. LISINOPRIL [Concomitant]
  24. INSULIN [Concomitant]

REACTIONS (40)
  - ANGINA PECTORIS [None]
  - ANXIETY [None]
  - ARTERIOSCLEROSIS CORONARY ARTERY [None]
  - ASTHENIA [None]
  - BACK PAIN [None]
  - BRONCHITIS [None]
  - BURNING SENSATION [None]
  - CARDIAC FAILURE CONGESTIVE [None]
  - CHRONIC OBSTRUCTIVE PULMONARY DISEASE [None]
  - CONFUSIONAL STATE [None]
  - CONSTIPATION [None]
  - CORONARY ARTERY DISEASE [None]
  - DECREASED APPETITE [None]
  - DIZZINESS [None]
  - DYSLIPIDAEMIA [None]
  - DYSPEPSIA [None]
  - ECONOMIC PROBLEM [None]
  - EMPHYSEMA [None]
  - FATIGUE [None]
  - GASTRITIS [None]
  - HEART RATE IRREGULAR [None]
  - HEPATITIS VIRAL [None]
  - HYPERTENSION [None]
  - HYPERTENSIVE HEART DISEASE [None]
  - HYPOAESTHESIA [None]
  - HYPOTENSION [None]
  - INJURY [None]
  - LEFT VENTRICULAR DYSFUNCTION [None]
  - LEFT VENTRICULAR HYPERTROPHY [None]
  - NAUSEA [None]
  - NEUROPATHY PERIPHERAL [None]
  - OEDEMA PERIPHERAL [None]
  - OSTEOPOROSIS [None]
  - PARAESTHESIA [None]
  - PERICARDIAL EFFUSION [None]
  - PERIPHERAL ARTERIAL OCCLUSIVE DISEASE [None]
  - PLEURAL EFFUSION [None]
  - RENAL FAILURE [None]
  - SPINAL COLUMN STENOSIS [None]
  - WEIGHT DECREASED [None]
